FAERS Safety Report 20003485 (Version 2)
Quarter: 2022Q1

REPORT INFORMATION
  Report Type: Report from Study
  Country: US (occurrence: US)
  Receive Date: 20211028
  Receipt Date: 20220228
  Transmission Date: 20220423
  Serious: No
  Sender: FDA-Public Use
  Company Number: US-ACADIA PHARMACEUTICALS INC.-ACA-2021-PIM-003538

PATIENT
  Age: 75 Year
  Sex: Female

DRUGS (7)
  1. NUPLAZID [Suspect]
     Active Substance: PIMAVANSERIN TARTRATE
     Indication: Parkinson^s disease psychosis
     Dosage: 10 MILLIGRAM, QD
     Route: 065
     Dates: start: 20210804
  2. NUPLAZID [Suspect]
     Active Substance: PIMAVANSERIN TARTRATE
     Indication: Hallucination
  3. NUPLAZID [Suspect]
     Active Substance: PIMAVANSERIN TARTRATE
     Indication: Delusion
  4. NUPLAZID [Suspect]
     Active Substance: PIMAVANSERIN TARTRATE
     Indication: Parkinson^s disease
  5. CELECOXIB [Concomitant]
     Active Substance: CELECOXIB
     Dosage: 20 MILLIGRAM
     Dates: start: 20210405
  6. CELECOXIB [Concomitant]
     Active Substance: CELECOXIB
     Dosage: 10 MILLIGRAM
     Dates: start: 20210904
  7. CELECOXIB [Concomitant]
     Active Substance: CELECOXIB
     Dosage: 10 MILLIGRAM, D/C
     Dates: start: 20211004

REACTIONS (1)
  - Prescribed underdose [Recovered/Resolved]

NARRATIVE: CASE EVENT DATE: 20210804
